FAERS Safety Report 7179873-8 (Version None)
Quarter: 2010Q4

REPORT INFORMATION
  Report Type: 
  Country: None (occurrence: None)
  Receive Date: 20101208
  Receipt Date: 20101110
  Transmission Date: 20110411
  Serious: Yes (Disabling, Other)
  Sender: FDA-Public Use
  Company Number: 2010-00017

PATIENT
  Age: 14 Year
  Sex: Female
  Weight: 48.9885 kg

DRUGS (1)
  1. NTG OIL-FREE ACNE WASH PINK GRPFRT 2% SALICYLIC ACID [Suspect]
     Indication: ACNE
     Dosage: 1X PER DAY, TOPICAL
     Route: 061
     Dates: start: 20100729, end: 20100729

REACTIONS (3)
  - DIARRHOEA [None]
  - ERYTHEMA [None]
  - SYNCOPE [None]
